FAERS Safety Report 4476413-9 (Version None)
Quarter: 2004Q4

REPORT INFORMATION
  Report Type: 
  Country: None (occurrence: None)
  Receive Date: 20041016
  Receipt Date: 20041008
  Transmission Date: 20050328
  Serious: Yes (Other)
  Sender: FDA-Public Use
  Company Number: US-MERCK-0410USA01508

PATIENT
  Age: 56 Year
  Sex: Female

DRUGS (1)
  1. VIOXX [Suspect]
     Indication: PAIN MANAGEMENT
     Route: 048
     Dates: start: 19990101, end: 20041008

REACTIONS (4)
  - CHOLELITHIASIS [None]
  - GALLBLADDER OPERATION [None]
  - GENERALISED OEDEMA [None]
  - UNEVALUABLE EVENT [None]
